FAERS Safety Report 7347216-2 (Version None)
Quarter: 2011Q1

REPORT INFORMATION
  Report Type: 
  Country: None (occurrence: None)
  Receive Date: 20110311
  Receipt Date: 20110309
  Transmission Date: 20110831
  Serious: Yes (Hospitalization, Disabling, Other)
  Sender: FDA-Public Use
  Company Number: US-PFIZER INC-2010083018

PATIENT
  Sex: Male

DRUGS (6)
  1. BENICAR [Concomitant]
     Dosage: UNK
     Dates: start: 20080101
  2. BENZTROPEINE [Concomitant]
     Dosage: UNK
     Dates: start: 20050101
  3. TRAZODONE [Concomitant]
     Indication: SLEEP DISORDER
     Dosage: UNK
     Dates: start: 20040101
  4. CHANTIX [Suspect]
     Indication: SMOKING CESSATION THERAPY
     Dosage: UNK
  5. GEODON [Concomitant]
     Indication: MENTAL DISORDER
     Dosage: UNK
     Dates: start: 20040101
  6. MONTELUKAST [Concomitant]
     Indication: HYPERSENSITIVITY
     Dosage: UNK
     Dates: start: 20050101

REACTIONS (4)
  - DEPRESSION [None]
  - MENTAL DISORDER [None]
  - INTENTIONAL OVERDOSE [None]
  - SUICIDE ATTEMPT [None]
